FAERS Safety Report 18659417 (Version 1)
Quarter: 2020Q4

REPORT INFORMATION
  Report Type: Spontaneous
  Country: AU (occurrence: AU)
  Receive Date: 20201223
  Receipt Date: 20201223
  Transmission Date: 20210114
  Serious: Yes (Other)
  Sender: FDA-Public Use
  Company Number: AU-ANIPHARMA-2020-AU-000302

PATIENT
  Age: 84 Year
  Sex: Female

DRUGS (14)
  1. WARFARIN [Suspect]
     Active Substance: WARFARIN
     Route: 065
  2. SEROQUEL [Suspect]
     Active Substance: QUETIAPINE FUMARATE
     Route: 048
  3. NORMISON [TEMAZEPAM] [Suspect]
     Active Substance: TEMAZEPAM
     Route: 065
  4. ZYLOPRIM [Suspect]
     Active Substance: ALLOPURINOL
     Route: 065
  5. CYMBALTA [Suspect]
     Active Substance: DULOXETINE HYDROCHLORIDE
     Route: 065
  6. DIGOXIN. [Suspect]
     Active Substance: DIGOXIN
     Route: 065
  7. HYDROCHLOROTHIAZIDE. [Suspect]
     Active Substance: HYDROCHLOROTHIAZIDE
     Route: 065
  8. MONODUR [Suspect]
     Active Substance: ISOSORBIDE MONONITRATE
     Route: 048
  9. BETALOC [Suspect]
     Active Substance: METOPROLOL
     Route: 065
  10. ATACAND [Suspect]
     Active Substance: CANDESARTAN CILEXETIL
     Indication: PRODUCT USED FOR UNKNOWN INDICATION
     Route: 048
  11. LASIX [Suspect]
     Active Substance: FUROSEMIDE
     Route: 065
  12. ALDACTONE [Suspect]
     Active Substance: SPIRONOLACTONE
     Route: 065
  13. BICOR [TERODILINE HYDROCHLORIDE] [Suspect]
     Active Substance: TERODILINE HYDROCHLORIDE
     Route: 065
  14. NOVOMIX [Suspect]
     Active Substance: INSULIN ASPART
     Route: 065

REACTIONS (2)
  - Dementia [Unknown]
  - Acute kidney injury [Unknown]
